FAERS Safety Report 5402364-9 (Version None)
Quarter: 2007Q3

REPORT INFORMATION
  Report Type: 
  Country: None (occurrence: None)
  Receive Date: 20070730
  Receipt Date: 20070730
  Transmission Date: 20080115
  Serious: Yes (Other)
  Sender: FDA-Public Use
  Company Number: None

PATIENT
  Age: 11 Year
  Sex: Male
  Weight: 34.0198 kg

DRUGS (2)
  1. SYSTANE LUBRICANT EYE DROPS ALCON [Suspect]
     Indication: DRY EYE
     Dosage: 1 DROP IN EACH EYE 2X A DAY TOP
     Route: 061
     Dates: start: 20070724, end: 20070725
  2. PATANOL [Suspect]
     Indication: CHEMICAL EYE INJURY
     Dosage: 1 DROP IN EACH EYE 2X A DAY TOP
     Route: 061
     Dates: start: 20070723, end: 20070725

REACTIONS (6)
  - CORNEAL ABRASION [None]
  - DISCOMFORT [None]
  - ERYTHEMA OF EYELID [None]
  - FOREIGN BODY IN EYE [None]
  - OCULAR HYPERAEMIA [None]
  - PHARMACEUTICAL PRODUCT COMPLAINT [None]
